FAERS Safety Report 6558384-4 (Version None)
Quarter: 2010Q1

REPORT INFORMATION
  Report Type: 
  Country: None (occurrence: None)
  Receive Date: 20100129
  Receipt Date: 20100120
  Transmission Date: 20100710
  Serious: Yes (Death)
  Sender: FDA-Public Use
  Company Number: US-AMGEN-QUU386864

PATIENT
  Sex: Male

DRUGS (2)
  1. NPLATE [Suspect]
     Indication: IDIOPATHIC THROMBOCYTOPENIC PURPURA
     Dates: start: 20090209, end: 20090410
  2. CORTICOSTEROIDS [Concomitant]
     Dates: start: 20090119

REACTIONS (3)
  - ACUTE MYOCARDIAL INFARCTION [None]
  - CARDIOPULMONARY FAILURE [None]
  - PNEUMONIA [None]
